FAERS Safety Report 15317432 (Version 1)
Quarter: 2018Q3

REPORT INFORMATION
  Report Type: Spontaneous
  Country: GB (occurrence: GB)
  Receive Date: 20180824
  Receipt Date: 20180824
  Transmission Date: 20181010
  Serious: Yes (Other)
  Sender: FDA-Public Use
  Company Number: GB-ASTRAZENECA-2018SF04565

PATIENT
  Age: 52 Year
  Sex: Male
  Weight: 76.2 kg

DRUGS (2)
  1. SALAMOL [Concomitant]
     Active Substance: ALBUTEROL
     Indication: COUGH
  2. OMEPRAZOLE. [Suspect]
     Active Substance: OMEPRAZOLE
     Indication: GASTROOESOPHAGEAL REFLUX DISEASE
     Route: 048
     Dates: start: 20180730, end: 20180731

REACTIONS (8)
  - Nausea [Recovered/Resolved]
  - Skin mass [Unknown]
  - Lymphadenopathy [Recovering/Resolving]
  - Erythema [Unknown]
  - Influenza like illness [Unknown]
  - Fatigue [Unknown]
  - Headache [Unknown]
  - Pain [Unknown]

NARRATIVE: CASE EVENT DATE: 20180730
